FAERS Safety Report 7618346-2 (Version None)
Quarter: 2011Q3

REPORT INFORMATION
  Report Type: 
  Country: None (occurrence: None)
  Receive Date: 20110718
  Receipt Date: 20110707
  Transmission Date: 20111222
  Serious: Yes (Other)
  Sender: FDA-Public Use
  Company Number: PHHY2011JP61708

PATIENT
  Age: 48 Year
  Sex: Male

DRUGS (2)
  1. CYCLOSPORINE [Suspect]
     Dosage: UNK
     Route: 048
  2. CYCLOSPORINE [Suspect]
     Route: 048

REACTIONS (3)
  - KIDNEY TRANSPLANT REJECTION [None]
  - ANGINA PECTORIS [None]
  - NEPHROPATHY TOXIC [None]
